FAERS Safety Report 21568826 (Version 1)
Quarter: 2022Q4

REPORT INFORMATION
  Report Type: Report from Study
  Country: GB (occurrence: GB)
  Receive Date: 20221108
  Receipt Date: 20221108
  Transmission Date: 20230113
  Serious: Yes (Other)
  Sender: FDA-Public Use
  Company Number: GB-ABBVIE-22K-167-4533078-00

PATIENT
  Age: 71 Year
  Sex: Male

DRUGS (10)
  1. CARBIDOPA\LEVODOPA [Suspect]
     Active Substance: CARBIDOPA\LEVODOPA
     Indication: Parkinson^s disease
     Dosage: MD: 8.3MLS, CR: 3.0MLS, ED: 1.9MLS; DUODOPA 20MGS/5MGS? EXP DATE- 31OCT2022
     Route: 050
  2. CARBIDOPA\LEVODOPA [Suspect]
     Active Substance: CARBIDOPA\LEVODOPA
  3. SINEMET [Concomitant]
     Active Substance: CARBIDOPA\LEVODOPA
     Indication: Parkinson^s disease
     Dosage: 12.5/50MG; ;
  4. SINEMET [Concomitant]
     Active Substance: CARBIDOPA\LEVODOPA
     Indication: Parkinson^s disease
     Dosage: 12.5/50MG
  5. SINEMET [Concomitant]
     Active Substance: CARBIDOPA\LEVODOPA
     Indication: Parkinson^s disease
     Dosage: SR, HALF, 25/100MGS, AT 9 PM; ;
     Route: 050
  6. SINEMET [Concomitant]
     Active Substance: CARBIDOPA\LEVODOPA
     Indication: Parkinson^s disease
     Dosage: SR, HALF, 25/100MGS, AT 9 PM
     Route: 048
  7. SINEMET [Concomitant]
     Active Substance: CARBIDOPA\LEVODOPA
     Indication: Parkinson^s disease
     Dosage: HALF, 25/100MGS; ;
     Route: 050
  8. ROTIGOTINE [Concomitant]
     Active Substance: ROTIGOTINE
     Indication: Parkinson^s disease
     Dosage: OVERNIGHT
     Route: 050
  9. CLONAZEPAM [Concomitant]
     Active Substance: CLONAZEPAM
     Indication: Parkinson^s disease
     Route: 050
  10. Sinemet SR [Concomitant]
     Indication: Parkinson^s disease
     Dosage: HALF, 25/100MGS
     Route: 048

REACTIONS (7)
  - Device dislocation [Recovered/Resolved]
  - Paraesthesia [Unknown]
  - Diarrhoea [Recovered/Resolved]
  - Therapeutic product effect incomplete [Unknown]
  - Muscle rigidity [Unknown]
  - Stoma site haemorrhage [Not Recovered/Not Resolved]
  - Ulcer [Not Recovered/Not Resolved]

NARRATIVE: CASE EVENT DATE: 20220101
